FAERS Safety Report 9919248 (Version 2)
Quarter: 2014Q2

REPORT INFORMATION
  Report Type: Spontaneous
  Country: BR (occurrence: BR)
  Receive Date: 20140224
  Receipt Date: 20140606
  Transmission Date: 20141212
  Serious: Yes (Other)
  Sender: FDA-Public Use
  Company Number: BR-ASTRAZENECA-2014SE11508

PATIENT
  Age: 10773 Day
  Sex: Female

DRUGS (3)
  1. VANNAIR [Suspect]
     Indication: ASTHMA
     Dosage: 160/4.5 MCG, 2 INHALATION BID
     Route: 055
     Dates: start: 201312
  2. VANNAIR [Suspect]
     Indication: ASTHMA
     Dosage: 160/4.5 MCG, 2 INHALATIONS IN THE MORNING
     Route: 055
     Dates: start: 20140217, end: 20140217
  3. CARBOCYSTEINE [Concomitant]
     Indication: ASTHMA
     Dosage: DAILY
     Route: 048
     Dates: start: 201312, end: 20140217

REACTIONS (3)
  - Chest discomfort [Recovered/Resolved]
  - Chest pain [Recovered/Resolved]
  - Heart rate increased [Recovered/Resolved]
